FAERS Safety Report 5675891-7 (Version None)
Quarter: 2008Q1

REPORT INFORMATION
  Report Type: 
  Country: None (occurrence: None)
  Receive Date: 20080321
  Receipt Date: 20080311
  Transmission Date: 20080703
  Serious: Yes (Hospitalization)
  Sender: FDA-Public Use
  Company Number: A0707820A

PATIENT
  Age: 64 Year
  Sex: Female
  Weight: 65 kg

DRUGS (6)
  1. AVANDAMET [Suspect]
     Dosage: 4MG TWICE PER DAY
     Route: 048
  2. AVANDIA [Suspect]
     Dosage: 4MG PER DAY
     Route: 048
  3. IBUPROFEN [Suspect]
  4. METFORMIN HCL [Suspect]
  5. LANTUS [Concomitant]
  6. ZETIA [Concomitant]

REACTIONS (10)
  - CARDIAC DISORDER [None]
  - DEPRESSED LEVEL OF CONSCIOUSNESS [None]
  - DYSPNOEA [None]
  - FALL [None]
  - HYPERHIDROSIS [None]
  - HYPERSOMNIA [None]
  - MEMORY IMPAIRMENT [None]
  - OEDEMA PERIPHERAL [None]
  - RENAL IMPAIRMENT [None]
  - VOMITING [None]
